FAERS Safety Report 8468744-2 (Version None)
Quarter: 2012Q2

REPORT INFORMATION
  Report Type: 
  Country: None (occurrence: None)
  Receive Date: 20120626
  Receipt Date: 20120617
  Transmission Date: 20120825
  Serious: Yes (Other)
  Sender: FDA-Public Use
  Company Number: US-ABBOTT-12P-163-0947318-00

PATIENT
  Age: 50 Year
  Sex: Male

DRUGS (3)
  1. OTC IMMODIUM [Concomitant]
     Indication: PRODUCT USED FOR UNKNOWN INDICATION
  2. WELCHOL [Concomitant]
     Indication: BLOOD CHOLESTEROL
  3. HUMIRA [Suspect]
     Indication: CROHN'S DISEASE
     Dates: start: 20101104

REACTIONS (4)
  - MIGRAINE [None]
  - SINUSITIS [None]
  - FATIGUE [None]
  - IRON DEFICIENCY [None]
